FAERS Safety Report 15491000 (Version 1)
Quarter: 2018Q4

REPORT INFORMATION
  Report Type: Spontaneous
  Country: US (occurrence: US)
  Receive Date: 20181012
  Receipt Date: 20181012
  Transmission Date: 20190205
  Serious: No
  Sender: FDA-Public Use
  Company Number: US-BION-007024

PATIENT
  Sex: Female

DRUGS (1)
  1. PROGESTERONE 200MG CAPSULE BIONPHARMA [Suspect]
     Active Substance: PROGESTERONE
     Indication: PRODUCT USED FOR UNKNOWN INDICATION
     Dosage: STRENGTH: 200 MG ,??SINCE 2 MONTHS

REACTIONS (2)
  - Headache [Unknown]
  - Contraindicated product administered [Not Recovered/Not Resolved]
